FAERS Safety Report 4353044-2 (Version None)
Quarter: 2004Q2

REPORT INFORMATION
  Report Type: 
  Country: None (occurrence: None)
  Receive Date: 20040430
  Receipt Date: 20040129
  Transmission Date: 20050107
  Serious: No
  Sender: FDA-Public Use
  Company Number: 204129

PATIENT
  Age: 36 Year
  Sex: Male
  Weight: 83 kg

DRUGS (7)
  1. XOLAIR [Suspect]
     Indication: ASTHMA
     Dosage: 375 MG, Q2W, SUBCUTANEOUS
     Route: 058
     Dates: start: 20040104, end: 20040104
  2. MAXAIR [Concomitant]
  3. FLONASE [Concomitant]
  4. ADVAIR (SALMETEROL XINAFOATE, FLUTICASONE PROPIONATE) [Concomitant]
  5. ATROVENT [Concomitant]
  6. SEREVENT 9SALMETEROL XINAFOATE) [Concomitant]
  7. FLOVENT [Concomitant]

REACTIONS (1)
  - CHEST DISCOMFORT [None]
